FAERS Safety Report 16863738 (Version 2)
Quarter: 2020Q1

REPORT INFORMATION
  Report Type: Spontaneous
  Country: MX (occurrence: MX)
  Receive Date: 20190927
  Receipt Date: 20200108
  Transmission Date: 20200409
  Serious: Yes (Hospitalization, Other)
  Sender: FDA-Public Use
  Company Number: MX-BRISTOL-MYERS SQUIBB COMPANY-BMS-2019-092853

PATIENT
  Age: 43 Year
  Sex: Female

DRUGS (1)
  1. ABATACEPT [Suspect]
     Active Substance: ABATACEPT
     Indication: RHEUMATOID ARTHRITIS
     Dosage: INFORMATION UNAVAILABLE
     Route: 065
     Dates: start: 20180318

REACTIONS (2)
  - Tubo-ovarian abscess [Unknown]
  - Pelvic inflammatory disease [Unknown]
